FAERS Safety Report 10524895 (Version 1)
Quarter: 2014Q4

REPORT INFORMATION
  Report Type: Spontaneous
  Country: US (occurrence: None)
  Receive Date: 20141015
  Receipt Date: 20141015
  Transmission Date: 20150528
  Serious: No
  Sender: FDA-Public Use
  Company Number: None

PATIENT
  Age: 63 Year
  Sex: Male

DRUGS (1)
  1. ACTIMMUNE [Suspect]
     Active Substance: INTERFERON GAMMA-1B
     Indication: MYCOSIS FUNGOIDES
     Dosage: STRENGTH: 2MMIU/0.5  DOSE FORM: INJECTABLE
     Route: 058
     Dates: start: 20140926, end: 20141008

REACTIONS (4)
  - Nausea [None]
  - No therapeutic response [None]
  - Headache [None]
  - Incorrect product storage [None]

NARRATIVE: CASE EVENT DATE: 20140909
